FAERS Safety Report 12279991 (Version 3)
Quarter: 2016Q3

REPORT INFORMATION
  Report Type: Report from Study
  Country: VE (occurrence: VE)
  Receive Date: 20160418
  Receipt Date: 20160803
  Transmission Date: 20161109
  Serious: Yes (Death, Hospitalization, Other)
  Sender: FDA-Public Use
  Company Number: VE-BRISTOL-MYERS SQUIBB COMPANY-BMS-2016-028029

PATIENT
  Age: 44 Year
  Sex: Male

DRUGS (1)
  1. IPILIMUMAB [Suspect]
     Active Substance: IPILIMUMAB
     Indication: PRODUCT USED FOR UNKNOWN INDICATION
     Dosage: UNK
     Route: 065
     Dates: start: 20160219

REACTIONS (11)
  - Hyponatraemia [Unknown]
  - Gastrointestinal inflammation [Unknown]
  - Generalised oedema [Unknown]
  - Death [Fatal]
  - Adrenal disorder [Unknown]
  - Pleural effusion [Unknown]
  - Pneumonia [Unknown]
  - Aspiration pleural cavity [Unknown]
  - Hyperuricaemia [Unknown]
  - Nephritis [Unknown]
  - Hyperkalaemia [Unknown]

NARRATIVE: CASE EVENT DATE: 20160323
